FAERS Safety Report 4485629-7 (Version None)
Quarter: 2004Q4

REPORT INFORMATION
  Report Type: 
  Country: None (occurrence: None)
  Receive Date: 20041022
  Receipt Date: 20040915
  Transmission Date: 20050328
  Serious: No
  Sender: FDA-Public Use
  Company Number: 04-ADE-SU-0005-NAS

PATIENT
  Sex: Female

DRUGS (2)
  1. CYANOCOBALAMIN [Suspect]
     Indication: GASTRIC BYPASS
     Dosage: 500 UG 1 WEEK, IN
     Dates: end: 20040509
  2. CYANOCOBALAMIN [Suspect]
     Indication: POSTOPERATIVE CARE
     Dosage: 500 UG 1 WEEK, IN
     Dates: end: 20040509

REACTIONS (1)
  - ULCER [None]
